FAERS Safety Report 5743638-1 (Version None)
Quarter: 2008Q2

REPORT INFORMATION
  Report Type: 
  Country: None (occurrence: None)
  Receive Date: 20080515
  Receipt Date: 20070807
  Transmission Date: 20081010
  Serious: Yes (Hospitalization)
  Sender: FDA-Public Use
  Company Number: WAES 0708USA03071

PATIENT
  Age: 50 Year
  Sex: Female

DRUGS (3)
  1. HYDRODIURIL [Suspect]
     Dosage: 50 MG/DAILY/PO
     Route: 048
  2. HUMULIN 70/30 [Concomitant]
  3. SEROQUEL [Concomitant]

REACTIONS (1)
  - HYPOKALAEMIA [None]
